FAERS Safety Report 24625159 (Version 2)
Quarter: 2024Q4

REPORT INFORMATION
  Report Type: Report from Study
  Country: US (occurrence: US)
  Receive Date: 20241115
  Receipt Date: 20241120
  Transmission Date: 20250115
  Serious: Yes (Hospitalization)
  Sender: ABBVIE
  Company Number: US-ABBVIE-5999951

PATIENT
  Age: 18 Year
  Sex: Female
  Weight: 30 kg

DRUGS (30)
  1. HUMIRA [Suspect]
     Active Substance: ADALIMUMAB
     Indication: Crohn^s disease
     Route: 058
     Dates: start: 20160210, end: 20160720
  2. HUMIRA [Suspect]
     Active Substance: ADALIMUMAB
     Route: 058
     Dates: start: 20160720, end: 20180122
  3. AZATHIOPRINE [Suspect]
     Active Substance: AZATHIOPRINE
     Indication: Crohn^s disease
     Route: 048
     Dates: start: 20140113, end: 20180220
  4. AZATHIOPRINE [Suspect]
     Active Substance: AZATHIOPRINE
     Indication: Crohn^s disease
     Route: 048
     Dates: start: 20180221, end: 20180406
  5. AZATHIOPRINE [Suspect]
     Active Substance: AZATHIOPRINE
     Indication: Crohn^s disease
     Route: 048
     Dates: start: 20180409, end: 20180409
  6. AZATHIOPRINE [Suspect]
     Active Substance: AZATHIOPRINE
     Indication: Crohn^s disease
     Route: 048
     Dates: start: 20180406, end: 20180409
  7. VITAMIN D3 [Concomitant]
     Active Substance: CHOLECALCIFEROL
     Indication: Vitamin supplementation
     Dosage: 3000 UNITS
     Route: 048
     Dates: start: 2014
  8. FERROUS SULFATE [Concomitant]
     Active Substance: FERROUS SULFATE
     Indication: Mineral supplementation
     Dosage: TIME INTERVAL: 0.33333333 DAYS: 1 TABLET
     Route: 048
     Dates: start: 2014
  9. FOLIC ACID [Concomitant]
     Active Substance: FOLIC ACID
     Indication: Vitamin supplementation
     Route: 048
     Dates: start: 2014
  10. ZINC SULFATE [Concomitant]
     Active Substance: ZINC SULFATE
     Indication: Mineral supplementation
     Route: 048
     Dates: start: 2014
  11. ROWASA [Concomitant]
     Active Substance: MESALAMINE
     Indication: Crohn^s disease
     Route: 054
     Dates: start: 20160926
  12. ACETAMINOPHEN [Concomitant]
     Active Substance: ACETAMINOPHEN
     Indication: Procedural pain
     Dosage: AS NEEDED
     Route: 048
     Dates: start: 20161120
  13. OXYCODONE [Concomitant]
     Active Substance: OXYCODONE
     Indication: Large intestinal stenosis
     Dosage: AS NEEDED
     Route: 048
     Dates: start: 20161120
  14. MIRALAX [Concomitant]
     Active Substance: POLYETHYLENE GLYCOL 3350
     Indication: Constipation
     Dosage: 2 CAPSULE
     Route: 048
     Dates: start: 201702
  15. HYDROCORTISONE [Concomitant]
     Active Substance: HYDROCORTISONE
     Indication: Eczema
     Route: 061
     Dates: start: 20170824
  16. ONDANSETRON [Concomitant]
     Active Substance: ONDANSETRON
     Indication: Nausea
     Route: 048
     Dates: start: 20180221
  17. ASCORBIC ACID [Concomitant]
     Active Substance: ASCORBIC ACID
     Indication: Vitamin supplementation
     Route: 048
     Dates: start: 20190330
  18. TACROLIMUS [Concomitant]
     Active Substance: TACROLIMUS
     Indication: Anorectal swelling
     Route: 061
     Dates: start: 20180419
  19. TEMOVATE [Concomitant]
     Active Substance: CLOBETASOL PROPIONATE
     Indication: Anal erythema
     Route: 061
     Dates: start: 20190405
  20. IRON [Concomitant]
     Active Substance: IRON
     Indication: Blood iron decreased
     Dosage: ONCE
     Route: 042
     Dates: start: 20190413, end: 20190413
  21. IRON [Concomitant]
     Active Substance: IRON
     Indication: Blood iron decreased
     Dosage: TIME INTERVAL: 0.33333333 DAYS
     Route: 048
     Dates: start: 20190414
  22. IRON [Concomitant]
     Active Substance: IRON
     Indication: Blood iron decreased
     Dosage: ONCE
     Route: 042
     Dates: start: 20190412, end: 20190412
  23. OMEPRAZOLE [Concomitant]
     Active Substance: OMEPRAZOLE
     Indication: Gastritis
     Route: 048
     Dates: start: 20191208
  24. LACTOBACILLUS ACIDOPHILUS [Concomitant]
     Active Substance: LACTOBACILLUS ACIDOPHILUS
     Indication: Probiotic therapy
     Dosage: 1 CAPSULE
     Route: 048
     Dates: start: 20210405
  25. PREVACID [Concomitant]
     Active Substance: LANSOPRAZOLE
     Indication: Feeding intolerance
     Route: 048
     Dates: start: 20220202
  26. RINVOQ [Concomitant]
     Active Substance: UPADACITINIB
     Indication: Crohn^s disease
     Route: 048
     Dates: start: 20240304
  27. MIRENA [Concomitant]
     Active Substance: LEVONORGESTREL
     Indication: Contraception
     Dosage: 1 UNIT ONCE
     Route: 015
     Dates: start: 20240202
  28. DUPIXENT [Concomitant]
     Active Substance: DUPILUMAB
     Indication: Crohn^s disease
     Route: 058
     Dates: start: 20240621
  29. SKYRIZI [Concomitant]
     Active Substance: RISANKIZUMAB-RZAA
     Indication: Crohn^s disease
     Route: 058
     Dates: start: 20231227
  30. ONDANSETRON [Concomitant]
     Active Substance: ONDANSETRON
     Indication: Nausea
     Dosage: PRN
     Route: 048
     Dates: start: 20180221

REACTIONS (1)
  - Anaemia [Recovered/Resolved]

NARRATIVE: CASE EVENT DATE: 20240813
